FAERS Safety Report 11249687 (Version 1)
Quarter: 2015Q3

REPORT INFORMATION
  Report Type: Spontaneous
  Country: US (occurrence: US)
  Receive Date: 20150708
  Receipt Date: 20150708
  Transmission Date: 20151125
  Serious: No
  Sender: FDA-Public Use
  Company Number: US-ELI_LILLY_AND_COMPANY-US201002005560

PATIENT
  Sex: Female

DRUGS (7)
  1. XELODA [Concomitant]
     Active Substance: CAPECITABINE
     Indication: PANCREATIC CARCINOMA
  2. COUMADIN [Concomitant]
     Active Substance: WARFARIN SODIUM
  3. GEMZAR [Suspect]
     Active Substance: GEMCITABINE HYDROCHLORIDE
     Indication: PANCREATIC CARCINOMA
  4. SULFA                              /00150702/ [Concomitant]
     Active Substance: UNSPECIFIED INGREDIENT
  5. ANALGESICS [Concomitant]
     Active Substance: UNSPECIFIED INGREDIENT
  6. ZOMETA [Concomitant]
     Active Substance: ZOLEDRONIC ACID
  7. TARCEVA [Concomitant]
     Active Substance: ERLOTINIB HYDROCHLORIDE

REACTIONS (11)
  - International normalised ratio fluctuation [Unknown]
  - Pain [Unknown]
  - Fatigue [Unknown]
  - Hypersensitivity [Unknown]
  - Mobility decreased [Unknown]
  - Faecaloma [Unknown]
  - Rectal haemorrhage [Unknown]
  - Headache [Unknown]
  - Haemoglobin decreased [Unknown]
  - White blood cell count decreased [Unknown]
  - Ulcer [Unknown]
